FAERS Safety Report 7590452-0 (Version None)
Quarter: 2011Q2

REPORT INFORMATION
  Report Type: 
  Country: None (occurrence: None)
  Receive Date: 20110603
  Receipt Date: 20110310
  Transmission Date: 20111010
  Serious: No
  Sender: FDA-Public Use
  Company Number: 2011SP011213

PATIENT
  Age: 57 Year
  Sex: Female

DRUGS (5)
  1. SAPHRIS [Suspect]
     Indication: BIPOLAR DISORDER
     Dosage: 10 MG;BID
     Dates: start: 20110303, end: 20110309
  2. WELLBUTRIN [Concomitant]
  3. TOPAMAX [Concomitant]
  4. TRAZODONE HCL [Concomitant]
  5. RISPERDAL [Concomitant]

REACTIONS (2)
  - ABDOMINAL DISTENSION [None]
  - OEDEMA PERIPHERAL [None]
